FAERS Safety Report 7325760-1 (Version None)
Quarter: 2011Q1

REPORT INFORMATION
  Report Type: 
  Country: None (occurrence: None)
  Receive Date: 20110218
  Receipt Date: 20110202
  Transmission Date: 20110831
  Serious: Yes (Other)
  Sender: FDA-Public Use
  Company Number: 2011SP005482

PATIENT
  Age: 77 Year
  Sex: Female

DRUGS (1)
  1. GARASONE [Suspect]

REACTIONS (2)
  - EYELID OEDEMA [None]
  - OCULAR HYPERAEMIA [None]
